FAERS Safety Report 11148489 (Version 1)
Quarter: 2015Q2

REPORT INFORMATION
  Report Type: Spontaneous
  Country: US (occurrence: None)
  Receive Date: 20150528
  Receipt Date: 20150528
  Transmission Date: 20150821
  Serious: Yes (Disabling, Other)
  Sender: FDA-Public Use
  Company Number: None

PATIENT
  Age: 64 Year
  Sex: Female
  Weight: 52.16 kg

DRUGS (8)
  1. OMEPRAZOLE. [Concomitant]
     Active Substance: OMEPRAZOLE
  2. KRILL OIL [Concomitant]
     Active Substance: DIETARY SUPPLEMENT
  3. AMBIEN [Concomitant]
     Active Substance: ZOLPIDEM TARTRATE
  4. ALIGN [Concomitant]
     Active Substance: BIFIDOBACTERIUM LONGUM SUBSP. INFANTIS
  5. CITRACEL W/D [Concomitant]
  6. METAMUCIL [Concomitant]
     Active Substance: PLANTAGO SEED
  7. CIPROFLOXACN [Suspect]
     Active Substance: CIPROFLOXACIN
     Indication: URINARY TRACT INFECTION
     Route: 048
     Dates: start: 20110607, end: 20110609
  8. GLUCOSAMINE MSM [Concomitant]

REACTIONS (15)
  - Mobility decreased [None]
  - Muscle twitching [None]
  - Pain [None]
  - Burning sensation [None]
  - Balance disorder [None]
  - Dizziness [None]
  - Arthralgia [None]
  - Chills [None]
  - Fatigue [None]
  - Hypoaesthesia [None]
  - Quality of life decreased [None]
  - Eye disorder [None]
  - Abdominal discomfort [None]
  - Muscular weakness [None]
  - Muscle spasms [None]

NARRATIVE: CASE EVENT DATE: 20110607
